FAERS Safety Report 21651024 (Version 1)
Quarter: 2022Q4

REPORT INFORMATION
  Report Type: Spontaneous
  Country: CZ (occurrence: CZ)
  Receive Date: 20221128
  Receipt Date: 20221128
  Transmission Date: 20230112
  Serious: Yes (Death, Life-Threatening, Hospitalization, Other)
  Sender: FDA-Public Use
  Company Number: CZ-SA-2022SA482902

PATIENT
  Age: 64 Year
  Sex: Male

DRUGS (2)
  1. ENOXAPARIN SODIUM [Suspect]
     Active Substance: ENOXAPARIN SODIUM
     Indication: Pulmonary embolism
     Dosage: 1.4 ML S.C. (EVERY 12 HOURS WITH ANTIXA ACTIVITY CHECKS EVERY 4 HOURS AFTER ADMINISTRATION WITHIN TH
     Route: 058
  2. OXYGEN [Concomitant]
     Active Substance: OXYGEN
     Dosage: HIGH-FLOW

REACTIONS (14)
  - Pulmonary haemorrhage [Fatal]
  - Thoracic haemorrhage [Fatal]
  - Haemoptysis [Fatal]
  - Hypotension [Fatal]
  - Shock [Fatal]
  - Hypovolaemia [Fatal]
  - Haemothorax [Fatal]
  - Pulmonary alveolar haemorrhage [Fatal]
  - Pulmonary oedema [Fatal]
  - Lung infiltration [Fatal]
  - Pleural effusion [Fatal]
  - Leukostasis syndrome [Fatal]
  - Coagulopathy [Fatal]
  - Respiratory failure [Fatal]
